FAERS Safety Report 17818585 (Version 1)
Quarter: 2020Q2

REPORT INFORMATION
  Report Type: Spontaneous
  Country: HK (occurrence: HK)
  Receive Date: 20200523
  Receipt Date: 20200523
  Transmission Date: 20200714
  Serious: Yes (Hospitalization, Other)
  Sender: FDA-Public Use
  Company Number: HK-IPCA LABORATORIES LIMITED-IPC-2020-HK-001620

PATIENT

DRUGS (1)
  1. TRAMADOL. [Suspect]
     Active Substance: TRAMADOL
     Indication: PRODUCT USED FOR UNKNOWN INDICATION
     Dosage: UNK
     Route: 065

REACTIONS (9)
  - Seizure [Unknown]
  - Respiratory failure [Unknown]
  - Miosis [Unknown]
  - Respiratory acidosis [Unknown]
  - Loss of consciousness [Unknown]
  - Idiopathic intracranial hypertension [Recovered/Resolved]
  - Prescription drug used without a prescription [Unknown]
  - Poisoning [Unknown]
  - Metabolic acidosis [Unknown]
